FAERS Safety Report 23318767 (Version 1)
Quarter: 2023Q4

REPORT INFORMATION
  Report Type: Spontaneous
  Country: US (occurrence: US)
  Receive Date: 20231220
  Receipt Date: 20231220
  Transmission Date: 20240110
  Serious: No
  Sender: FDA-Public Use
  Company Number: ENDG23-03111

PATIENT
  Sex: Female

DRUGS (1)
  1. MINOXIDIL [Suspect]
     Active Substance: MINOXIDIL
     Indication: Alopecia
     Dosage: UNK UNKNOWN, UNKNOWN (HALF TABLET OF 2.5 MG TABLETS FOUR WEEKS AGO)
     Route: 065
     Dates: start: 202305

REACTIONS (3)
  - Alopecia [Unknown]
  - Nervousness [Unknown]
  - Off label use [Unknown]
